FAERS Safety Report 4385751-X (Version None)
Quarter: 2004Q2

REPORT INFORMATION
  Report Type: 
  Country: None (occurrence: None)
  Receive Date: 20040623
  Receipt Date: 20040608
  Transmission Date: 20050107
  Serious: Yes (Death)
  Sender: FDA-Public Use
  Company Number: 2004-BP-03767RP

PATIENT
  Age: 56 Year
  Sex: Male

DRUGS (2)
  1. MICARDIS HCT [Suspect]
     Dosage: (40 MG, 1 TAB OD)
     Route: 048
     Dates: start: 20031016
  2. DIALYSIS [Concomitant]

REACTIONS (1)
  - REFUSAL OF TREATMENT BY PATIENT [None]
